FAERS Safety Report 4975915-6 (Version None)
Quarter: 2006Q2

REPORT INFORMATION
  Report Type: 
  Country: None (occurrence: None)
  Receive Date: 20060404
  Receipt Date: 20060324
  Transmission Date: 20061013
  Serious: Yes (Hospitalization)
  Sender: FDA-Public Use
  Company Number: 2006BH002044

PATIENT
  Age: 57 Year
  Sex: Female
  Weight: 44.5 kg

DRUGS (11)
  1. BUMINATE 5% (ALBUMIN HUMAN) [Suspect]
     Indication: ASCITES
     Dosage: SEE IMAGE
     Route: 041
     Dates: start: 20060110
  2. BUMINATE 5% (ALBUMIN HUMAN) [Suspect]
     Indication: PROPHYLAXIS
     Dosage: SEE IMAGE
     Route: 041
     Dates: start: 20060110
  3. BUMINATE 5% (ALBUMIN HUMAN) [Suspect]
     Indication: ASCITES
     Dosage: SEE IMAGE
     Route: 041
     Dates: start: 20060112
  4. BUMINATE 5% (ALBUMIN HUMAN) [Suspect]
     Indication: PROPHYLAXIS
     Dosage: SEE IMAGE
     Route: 041
     Dates: start: 20060112
  5. BUMINATE 5% (ALBUMIN HUMAN) [Suspect]
     Indication: ASCITES
     Dosage: SEE IMAGE
     Route: 041
     Dates: start: 20060114
  6. BUMINATE 5% (ALBUMIN HUMAN) [Suspect]
     Indication: PROPHYLAXIS
     Dosage: SEE IMAGE
     Route: 041
     Dates: start: 20060114
  7. BUMINATE 5% (ALBUMIN HUMAN) [Suspect]
     Indication: ASCITES
     Dosage: SEE IMAGE
     Route: 041
     Dates: start: 20060118
  8. BUMINATE 5% (ALBUMIN HUMAN) [Suspect]
     Indication: PROPHYLAXIS
     Dosage: SEE IMAGE
     Route: 041
     Dates: start: 20060118
  9. BUMINATE 5% (ALBUMIN HUMAN) [Suspect]
     Indication: ASCITES
     Dosage: SEE IMAGE
     Route: 041
     Dates: start: 20060125
  10. BUMINATE 5% (ALBUMIN HUMAN) [Suspect]
     Indication: PROPHYLAXIS
     Dosage: SEE IMAGE
     Route: 041
     Dates: start: 20060125
  11. HEMODIALYSIS [Concomitant]

REACTIONS (5)
  - DERMATITIS EXFOLIATIVE [None]
  - ECZEMA [None]
  - EOSINOPHIL COUNT INCREASED [None]
  - SKIN OEDEMA [None]
  - URTICARIA [None]
